FAERS Safety Report 18284936 (Version 1)
Quarter: 2020Q3

REPORT INFORMATION
  Report Type: Spontaneous
  Country: None (occurrence: US)
  Receive Date: 20200918
  Receipt Date: 20200918
  Transmission Date: 20201103
  Serious: No
  Sender: FDA-Public Use
  Company Number: TCL 20-097

PATIENT
  Sex: Male

DRUGS (1)
  1. ACETAMINOPHEN 250 MG/ASPIRIN 250MG/CAFFEINE65MG TABLETS [Suspect]
     Active Substance: ACETAMINOPHEN\ASPIRIN\CAFFEINE
     Route: 048

REACTIONS (3)
  - Renal pain [Unknown]
  - Urea urine decreased [None]
  - Vomiting [Unknown]

NARRATIVE: CASE EVENT DATE: 20200601
